FAERS Safety Report 6335909-5 (Version None)
Quarter: 2009Q3

REPORT INFORMATION
  Report Type: 
  Country: None (occurrence: None)
  Receive Date: 20090826
  Receipt Date: 20090826
  Transmission Date: 20100115
  Serious: No
  Sender: FDA-Public Use
  Company Number: 09-027

PATIENT
  Age: 78 Year
  Sex: Female

DRUGS (5)
  1. PREDNISONE [Suspect]
     Indication: RHEUMATOID ARTHRITIS
     Dosage: 1, QD, PO
     Route: 048
     Dates: start: 20080801
  2. CLOPIDOGREL [Concomitant]
  3. METHOTREXATE [Concomitant]
  4. LEUCOVORIN FACTOR [Concomitant]
  5. ASPIRIN [Concomitant]

REACTIONS (2)
  - CONTUSION [None]
  - HAEMORRHAGIC DIATHESIS [None]
